FAERS Safety Report 9275648 (Version 2)
Quarter: 2013Q2

REPORT INFORMATION
  Report Type: Spontaneous
  Country: US (occurrence: US)
  Receive Date: 20130507
  Receipt Date: 20130604
  Transmission Date: 20140414
  Serious: No
  Sender: FDA-Public Use
  Company Number: US-PFIZER INC-2013140191

PATIENT
  Sex: Female

DRUGS (2)
  1. XELJANZ [Suspect]
     Dosage: UNK
     Dates: start: 20130401, end: 20130425
  2. PROGRAF [Interacting]
     Dosage: UNK

REACTIONS (8)
  - Drug interaction [Unknown]
  - Blood iron decreased [Unknown]
  - Fatigue [Unknown]
  - Malaise [Unknown]
  - Arthritis [Unknown]
  - Pain [Unknown]
  - Gait disturbance [Unknown]
  - Physical disability [Unknown]
